FAERS Safety Report 6504628-4 (Version None)
Quarter: 2009Q4

REPORT INFORMATION
  Report Type: 
  Country: None (occurrence: None)
  Receive Date: 20091218
  Receipt Date: 20091214
  Transmission Date: 20100525
  Serious: Yes (Other)
  Sender: FDA-Public Use
  Company Number: US-RB-026886-09

PATIENT
  Age: 60 Year
  Sex: Female
  Weight: 90 kg

DRUGS (2)
  1. MUCINEX DM [Suspect]
     Route: 048
     Dates: start: 20091102
  2. MUCINEX DM [Suspect]
     Indication: NASAL CONGESTION
     Route: 048
     Dates: start: 20091102

REACTIONS (2)
  - EPISTAXIS [None]
  - INCORRECT DRUG ADMINISTRATION DURATION [None]
